FAERS Safety Report 4515437-X (Version None)
Quarter: 2004Q4

REPORT INFORMATION
  Report Type: 
  Country: None (occurrence: None)
  Receive Date: 20041126
  Receipt Date: 20041118
  Transmission Date: 20050328
  Serious: Yes (Hospitalization, Other)
  Sender: FDA-Public Use
  Company Number: 2004095730

PATIENT
  Age: 70 Year
  Sex: Female
  Weight: 79.3795 kg

DRUGS (16)
  1. LIPITOR [Suspect]
     Indication: ILL-DEFINED DISORDER
     Dosage: 40 MG (1 IN 1 D), ORAL
     Route: 048
  2. DILTIAZEM HYDROCHLORIDE [Concomitant]
  3. METFORMIN HCL [Concomitant]
  4. POTASSIUM (POTASSIUM) [Concomitant]
  5. FUROSEMIDE [Concomitant]
  6. THEOPHYLLINE [Concomitant]
  7. ACETYLSALICYLIC ACIE (ACETHYLSALICYLIC ACID) [Concomitant]
  8. LISINOPRIL [Concomitant]
  9. MONTELUKAST SODIUM (MONTELUKAST SODIUM) [Concomitant]
  10. METOPROLOL TARTRATE [Concomitant]
  11. PREDNISONE [Concomitant]
  12. HYPROMELLOSE (HYPROMELLOSE) [Concomitant]
  13. PRDNISOLONE (PREDNISOLONE) [Concomitant]
  14. FLUTICASONE PROPIONATE [Concomitant]
  15. COMBIVENT [Concomitant]
  16. SERETIDE MIT (FLUTICASENE PROPIONATE, SALMETEROL XINAFOATE) [Concomitant]

REACTIONS (9)
  - ASTHENIA [None]
  - DIFFICULTY IN WALKING [None]
  - FLATULENCE [None]
  - GASTRIC DISORDER [None]
  - GOUT [None]
  - HEADACHE [None]
  - MUSCLE ATROPHY [None]
  - MYALGIA [None]
  - WEIGHT DECREASED [None]
